FAERS Safety Report 6763125-1 (Version None)
Quarter: 2010Q2

REPORT INFORMATION
  Report Type: 
  Country: None (occurrence: None)
  Receive Date: 20100608
  Receipt Date: 20100608
  Transmission Date: 20101027
  Serious: Yes (Death, Life-Threatening)
  Sender: FDA-Public Use
  Company Number: None

PATIENT
  Age: 66 Year
  Sex: Male
  Weight: 60 kg

DRUGS (8)
  1. VORINOSTAT 100MG MERCK [Suspect]
     Indication: MANTLE CELL LYMPHOMA
     Dosage: 400 MG DAILY PO
     Route: 048
  2. CLADRIBINE [Suspect]
     Dosage: 8.5 MG DAILY X5
  3. RITUXIMAB [Suspect]
     Dosage: 650 MG WEEKLY
  4. COUMADIN [Concomitant]
  5. LISINOPRIL [Concomitant]
  6. LEVOTHYROXINE SODIUM [Concomitant]
  7. ADVAIR DISKUS 100/50 [Concomitant]
  8. SPIRIVA [Concomitant]

REACTIONS (4)
  - DIARRHOEA [None]
  - PULMONARY HAEMORRHAGE [None]
  - PYREXIA [None]
  - THERAPEUTIC AGENT TOXICITY [None]
